FAERS Safety Report 9877256 (Version 1)
Quarter: 2014Q1

REPORT INFORMATION
  Report Type: Report from Study
  Country: JP (occurrence: JP)
  Receive Date: 20140206
  Receipt Date: 20140206
  Transmission Date: 20141002
  Serious: Yes (Other)
  Sender: FDA-Public Use
  Company Number: JP-BAYER-2014-013632

PATIENT
  Age: 20 Year
  Sex: Male

DRUGS (1)
  1. MOXIFLOXACIN ORAL [Suspect]
     Indication: PNEUMONIA PSEUDOMONAL
     Dosage: 400 MG, QD
     Route: 048

REACTIONS (2)
  - Pneumonia [Recovering/Resolving]
  - Drug ineffective [None]
